FAERS Safety Report 5779357-5 (Version None)
Quarter: 2008Q2

REPORT INFORMATION
  Report Type: 
  Country: None (occurrence: None)
  Receive Date: 20080619
  Receipt Date: 20080610
  Transmission Date: 20081010
  Serious: Yes (Hospitalization)
  Sender: FDA-Public Use
  Company Number: ES-BOEHRINGER INGELHEIM GMBH, GERMANY-2008-ES-00591SC

PATIENT
  Age: 84 Year
  Sex: Female

DRUGS (7)
  1. MELOXICAM [Suspect]
     Indication: PROPHYLAXIS
     Route: 048
     Dates: start: 20080101, end: 20080430
  2. ASPIRIN [Suspect]
     Indication: PROPHYLAXIS
     Route: 048
     Dates: start: 20080101, end: 20080430
  3. ZAMENE [Suspect]
     Route: 048
     Dates: start: 20080101
  4. OMEPRAZOLE [Concomitant]
     Indication: PROPHYLAXIS
     Route: 048
  5. IBERCAL [Concomitant]
     Route: 048
     Dates: end: 20080430
  6. LORMETAZEPAM [Concomitant]
     Route: 048
  7. MASDIL RETARD [Concomitant]
     Route: 048

REACTIONS (2)
  - HAEMATOCHEZIA [None]
  - RECTAL HAEMORRHAGE [None]
